FAERS Safety Report 7266997-X (Version None)
Quarter: 2011Q1

REPORT INFORMATION
  Report Type: 
  Country: None (occurrence: None)
  Receive Date: 20110201
  Receipt Date: 20110126
  Transmission Date: 20110831
  Serious: Yes (Hospitalization)
  Sender: FDA-Public Use
  Company Number: GB-JNJFOC-20101102493

PATIENT
  Age: 15 Year
  Sex: Female

DRUGS (3)
  1. METHYLPHENIDATE HCL [Suspect]
     Indication: ILL-DEFINED DISORDER
     Route: 048
  2. MELATONIN [Suspect]
     Indication: ILL-DEFINED DISORDER
     Route: 065
  3. VALPROATE SODIUM [Suspect]
     Indication: ILL-DEFINED DISORDER
     Route: 065

REACTIONS (2)
  - OVERDOSE [None]
  - MULTIPLE DRUG OVERDOSE INTENTIONAL [None]
